FAERS Safety Report 16819300 (Version 2)
Quarter: 2019Q3

REPORT INFORMATION
  Report Type: Spontaneous
  Country: DZ (occurrence: DZ)
  Receive Date: 20190917
  Receipt Date: 20190917
  Transmission Date: 20191005
  Serious: Yes (Hospitalization, Other)
  Sender: FDA-Public Use
  Company Number: PHHY2019DZ213098

PATIENT
  Age: 24 Year
  Sex: Female

DRUGS (5)
  1. PARACETAMOL [Suspect]
     Active Substance: ACETAMINOPHEN
     Indication: ARTHROPOD STING
     Dosage: 1 G, Q6H
     Route: 042
  2. CITICOLINE [Suspect]
     Active Substance: CITICOLINE
     Indication: ARTHROPOD STING
     Dosage: 200 MG, Q12H DURING 2 DAYS
     Route: 048
  3. CORTANCYL [Suspect]
     Active Substance: PREDNISONE
     Indication: ARTHROPOD STING
     Dosage: 5 MG, UNK DURING 6 WEEKS
     Route: 048
  4. DEXAMETHASONE. [Suspect]
     Active Substance: DEXAMETHASONE
     Dosage: 80 MG, Q8H (DURING 8 DAYS)
     Route: 042
  5. DEXAMETHASONE. [Suspect]
     Active Substance: DEXAMETHASONE
     Indication: ARTHROPOD STING
     Dosage: 80 MG, Q6H (DURING 8 DAYS)
     Route: 042

REACTIONS (2)
  - Blindness [Not Recovered/Not Resolved]
  - Toxic neuropathy [Not Recovered/Not Resolved]
